FAERS Safety Report 4572124-X (Version None)
Quarter: 2005Q1

REPORT INFORMATION
  Report Type: 
  Country: None (occurrence: None)
  Receive Date: 20050202
  Receipt Date: 20050112
  Transmission Date: 20050727
  Serious: Yes (Hospitalization, Other)
  Sender: FDA-Public Use
  Company Number: USA041285729

PATIENT
  Age: 47 Year
  Sex: Female
  Weight: 49 kg

DRUGS (3)
  1. CYMBALTA [Suspect]
     Indication: DEPRESSION
     Dosage: 30 MG/1 DAY
     Dates: start: 20041001, end: 20041111
  2. CONCERTA [Concomitant]
  3. PERCOGESIC [Concomitant]

REACTIONS (25)
  - ADNEXA UTERI CYST [None]
  - ASTHENIA [None]
  - BLOOD ALBUMIN DECREASED [None]
  - BLOOD AMYLASE DECREASED [None]
  - BLOOD POTASSIUM DECREASED [None]
  - CREATINE PHOSPHOKINASE DECREASED [None]
  - DIZZINESS [None]
  - DYSPEPSIA [None]
  - ENDOMETRIAL HYPERTROPHY [None]
  - GASTROENTERITIS VIRAL [None]
  - HEPATITIS ACUTE [None]
  - INTERNATIONAL NORMALISED RATIO INCREASED [None]
  - IRON BINDING CAPACITY TOTAL INCREASED [None]
  - LIPASE INCREASED [None]
  - LOSS OF CONSCIOUSNESS [None]
  - MONOCYTE PERCENTAGE INCREASED [None]
  - NAUSEA [None]
  - PANCREATIC DUCT OBSTRUCTION [None]
  - POLYP [None]
  - PROTEIN TOTAL INCREASED [None]
  - PROTHROMBIN TIME PROLONGED [None]
  - PYREXIA [None]
  - TRANSFERRIN INCREASED [None]
  - TRANSFERRIN SATURATION DECREASED [None]
  - VOMITING [None]
